FAERS Safety Report 15644963 (Version 1)
Quarter: 2018Q4

REPORT INFORMATION
  Report Type: Spontaneous
  Country: JP (occurrence: JP)
  Receive Date: 20181121
  Receipt Date: 20181121
  Transmission Date: 20190205
  Serious: Yes (Life-Threatening, Other)
  Sender: FDA-Public Use
  Company Number: IND-JP-009507513-1808JPN000741J

PATIENT
  Age: 75 Year
  Sex: Female
  Weight: 51 kg

DRUGS (9)
  1. SEVOFLURANE. [Suspect]
     Active Substance: SEVOFLURANE
     Indication: SEDATION
  2. ESLAX INTRAVENOUS 25MG/2.5ML [Suspect]
     Active Substance: ROCURONIUM BROMIDE
     Indication: HYPOTONIA
     Dosage: 30 MILLIGRAM, QD
     Route: 042
     Dates: start: 20160516, end: 20160516
  3. PROPOFOL. [Suspect]
     Active Substance: PROPOFOL
     Indication: ANAESTHESIA PROCEDURE
     Dosage: 100 MILLIGRAM, QD
     Route: 042
     Dates: start: 20160516
  4. ESLAX INTRAVENOUS 25MG/2.5ML [Suspect]
     Active Substance: ROCURONIUM BROMIDE
     Indication: ANAESTHESIA PROCEDURE
  5. SOSEGON [Suspect]
     Active Substance: PENTAZOCINE
     Indication: ANALGESIC THERAPY
  6. BRIDION [Suspect]
     Active Substance: SUGAMMADEX
     Indication: NEUROMUSCULAR BLOCKADE REVERSAL
     Dosage: 200 MG, UNK
     Route: 042
     Dates: start: 20160516, end: 20160516
  7. PROPOFOL. [Suspect]
     Active Substance: PROPOFOL
     Indication: SEDATION
  8. SOSEGON [Suspect]
     Active Substance: PENTAZOCINE
     Indication: ANAESTHESIA PROCEDURE
     Dosage: 30 MILLIGRAM, QD
     Route: 042
     Dates: start: 20160516
  9. SEVOFLURANE. [Suspect]
     Active Substance: SEVOFLURANE
     Indication: ANAESTHESIA PROCEDURE
     Dosage: 2 PERCENT
     Dates: start: 20160516

REACTIONS (10)
  - Ventricular hypokinesia [Recovered/Resolved]
  - Atrioventricular block [Recovered/Resolved]
  - Hypotension [Recovered/Resolved]
  - Depressed level of consciousness [Recovered/Resolved]
  - Circulatory collapse [Recovered/Resolved]
  - Ventricular extrasystoles [Recovered/Resolved]
  - Bradycardia [Recovered/Resolved]
  - Ventricular fibrillation [Recovered/Resolved]
  - Electrocardiogram abnormal [Recovered/Resolved]
  - Arteriospasm coronary [Recovered/Resolved]

NARRATIVE: CASE EVENT DATE: 20160516
